FAERS Safety Report 8426208-6 (Version None)
Quarter: 2012Q2

REPORT INFORMATION
  Report Type: 
  Country: None (occurrence: None)
  Receive Date: 20120611
  Receipt Date: 20120528
  Transmission Date: 20120825
  Serious: Yes (Hospitalization, Other)
  Sender: FDA-Public Use
  Company Number: AU-CELGENEUS-008-50794-12041062

PATIENT
  Sex: Female
  Weight: 60 kg

DRUGS (15)
  1. VIDAZA [Suspect]
     Dosage: 125 MILLIGRAM
     Route: 065
     Dates: start: 20111128, end: 20120319
  2. FILGRASTIM [Concomitant]
     Dosage: 100 MICROGRAM
     Route: 058
     Dates: start: 20120421
  3. CYCLIZINE [Concomitant]
     Indication: NAUSEA
     Dosage: 75 MILLIGRAM
     Route: 048
     Dates: start: 20120320
  4. COLOXYL SENNA [Concomitant]
     Route: 048
     Dates: start: 20120329
  5. POTASSIUM CHLORIDE [Concomitant]
     Dosage: 1200 MILLIGRAM
     Route: 048
     Dates: start: 20120329, end: 20120405
  6. FILGRASTIM [Concomitant]
     Indication: NEUTROPENIA
     Dosage: 100 MICROGRAM
     Route: 058
     Dates: start: 20120227, end: 20120309
  7. PROCHLORPERAZINE [Concomitant]
     Indication: NAUSEA
     Dosage: 15 MILLIGRAM
     Route: 048
     Dates: start: 20111220
  8. PANOBINOSTAT [Suspect]
     Dosage: 30 MILLIGRAM
     Route: 065
     Dates: start: 20111202, end: 20120323
  9. PANOBINOSTAT [Suspect]
     Dosage: 20 MILLIGRAM
     Route: 065
  10. POTASSIUM CHLORIDE [Concomitant]
     Dosage: 2400 MILLIGRAM
     Route: 048
     Dates: start: 20120405
  11. POSACONAZOLE [Concomitant]
     Indication: PROPHYLAXIS
     Dosage: 600 MILLIGRAM
     Route: 048
     Dates: start: 20120405
  12. FILGRASTIM [Concomitant]
     Dosage: 300 MILLIGRAM
     Route: 058
     Dates: start: 20120409, end: 20120418
  13. ACETAMINOPHEN [Concomitant]
     Indication: PAIN
     Dosage: 500-1000
     Route: 048
     Dates: start: 20111119
  14. LACTULOSE [Concomitant]
     Route: 048
     Dates: start: 20120329
  15. ACETAMINOPHEN [Concomitant]

REACTIONS (2)
  - INFECTION [None]
  - HAEMORRHOIDS [None]
